FAERS Safety Report 8492153 (Version 3)
Quarter: 2013Q1

REPORT INFORMATION
  Report Type: Spontaneous
  Country: JP (occurrence: JP)
  Receive Date: 20120403
  Receipt Date: 20130110
  Transmission Date: 20140127
  Serious: Yes (Disabling, Congenital Anomaly)
  Sender: FDA-Public Use
  Company Number: PHHY2012JP026924

PATIENT
  Age: 3 Year
  Sex: 0

DRUGS (1)
  1. DIOVAN [Suspect]
     Dosage: 40 MG, DAILY
     Route: 064

REACTIONS (2)
  - Phalangeal hypoplasia [Not Recovered/Not Resolved]
  - Foetal exposure during pregnancy [Unknown]
